FAERS Safety Report 14131806 (Version 2)
Quarter: 2017Q4

REPORT INFORMATION
  Report Type: Report from Study
  Country: US (occurrence: US)
  Receive Date: 20171026
  Receipt Date: 20171102
  Transmission Date: 20180321
  Serious: Yes (Hospitalization)
  Sender: FDA-Public Use
  Company Number: US-JNJFOC-20171027388

PATIENT
  Age: 13 Year
  Sex: Female
  Weight: 35.7 kg

DRUGS (2)
  1. REMICADE [Suspect]
     Active Substance: INFLIXIMAB
     Indication: CROHN^S DISEASE
     Route: 042
     Dates: start: 20100805
  2. ENTYVIO [Concomitant]
     Active Substance: VEDOLIZUMAB
     Route: 065

REACTIONS (2)
  - Crohn^s disease [Recovered/Resolved]
  - Anal fistula [Recovered/Resolved with Sequelae]

NARRATIVE: CASE EVENT DATE: 20170803
